FAERS Safety Report 12262073 (Version 1)
Quarter: 2016Q2

REPORT INFORMATION
  Report Type: Spontaneous
  Country: DE (occurrence: DE)
  Receive Date: 20160413
  Receipt Date: 20160413
  Transmission Date: 20160815
  Serious: Yes (Other)
  Sender: FDA-Public Use
  Company Number: DE-ASTRAZENECA-2016SE37846

PATIENT
  Age: 75 Year
  Sex: Female

DRUGS (2)
  1. ATACAND [Suspect]
     Active Substance: CANDESARTAN CILEXETIL
     Indication: ESSENTIAL HYPERTENSION
     Route: 048
  2. ATACAND [Suspect]
     Active Substance: CANDESARTAN CILEXETIL
     Indication: ESSENTIAL HYPERTENSION
     Route: 048

REACTIONS (6)
  - Intentional product misuse [Unknown]
  - Skin reaction [Unknown]
  - Swelling face [Unknown]
  - Drug hypersensitivity [Unknown]
  - Rash pustular [Unknown]
  - Pruritus generalised [Unknown]
